FAERS Safety Report 19031928 (Version 2)
Quarter: 2021Q2

REPORT INFORMATION
  Report Type: Spontaneous
  Country: US (occurrence: US)
  Receive Date: 20210319
  Receipt Date: 20210415
  Transmission Date: 20210717
  Serious: Yes (Hospitalization)
  Sender: FDA-Public Use
  Company Number: US-SA-2021SA093668

PATIENT
  Age: 58 Year
  Sex: Male
  Weight: 117.9 kg

DRUGS (5)
  1. DUPIXENT [Suspect]
     Active Substance: DUPILUMAB
     Indication: DERMATITIS ATOPIC
     Dosage: 300 MG, QOW
     Route: 058
     Dates: start: 201912
  2. TURMERIC CURCUMIN [CURCUMA LONGA] [Concomitant]
     Dosage: UNK
     Route: 065
  3. HYDROXYZINE HCL [Concomitant]
     Active Substance: HYDROXYZINE HYDROCHLORIDE
     Dosage: UNK
     Route: 065
  4. MELOXICAM. [Concomitant]
     Active Substance: MELOXICAM
     Dosage: UNK
     Route: 065
  5. TRIAMCINOLONE ACETONIDE. [Concomitant]
     Active Substance: TRIAMCINOLONE ACETONIDE
     Dosage: UNK
     Route: 065

REACTIONS (4)
  - Foot deformity [Unknown]
  - Feeling abnormal [Unknown]
  - Hospitalisation [Unknown]
  - Adverse drug reaction [Unknown]

NARRATIVE: CASE EVENT DATE: 2020
